FAERS Safety Report 7559110-2 (Version None)
Quarter: 2011Q2

REPORT INFORMATION
  Report Type: 
  Country: None (occurrence: None)
  Receive Date: 20110613
  Receipt Date: 20110607
  Transmission Date: 20111010
  Serious: Yes (Hospitalization, Other)
  Sender: FDA-Public Use
  Company Number: 2010SP006033

PATIENT
  Age: 31 Year
  Sex: Female
  Weight: 72.5755 kg

DRUGS (1)
  1. NUVARING [Suspect]
     Indication: CONTRACEPTION
     Dates: start: 20040901, end: 20060307

REACTIONS (12)
  - HYPOAESTHESIA [None]
  - PERIPHERAL VASCULAR DISORDER [None]
  - BLINDNESS UNILATERAL [None]
  - HEADACHE [None]
  - DRUG EXPOSURE BEFORE PREGNANCY [None]
  - PRE-ECLAMPSIA [None]
  - RETINAL VEIN OCCLUSION [None]
  - PULMONARY EMBOLISM [None]
  - RETINAL ARTERY OCCLUSION [None]
  - MIGRAINE [None]
  - HYPERTENSION [None]
  - THROMBOSIS [None]
